FAERS Safety Report 24679540 (Version 2)
Quarter: 2025Q1

REPORT INFORMATION
  Report Type: Spontaneous
  Country: US (occurrence: US)
  Receive Date: 20241129
  Receipt Date: 20250114
  Transmission Date: 20250409
  Serious: No
  Sender: ALEXION PHARMACEUTICALS
  Company Number: US-AstraZeneca-CH-00754305AP

PATIENT

DRUGS (4)
  1. BYDUREON BCISE [Suspect]
     Active Substance: EXENATIDE
     Indication: Blood glucose abnormal
     Dosage: 2 MILLIGRAM, QW
  2. BYDUREON BCISE [Suspect]
     Active Substance: EXENATIDE
     Dosage: 2 MILLIGRAM, QW
     Route: 058
  3. BYDUREON BCISE [Suspect]
     Active Substance: EXENATIDE
     Dosage: 2 MILLIGRAM, QW
  4. BYDUREON BCISE [Suspect]
     Active Substance: EXENATIDE
     Dosage: 2 MILLIGRAM, QW
     Route: 058

REACTIONS (5)
  - Incorrect dose administered [Unknown]
  - Fatigue [Unknown]
  - Device malfunction [Unknown]
  - Product dose omission issue [Unknown]
  - Device leakage [Unknown]
